FAERS Safety Report 15614465 (Version 1)
Quarter: 2018Q4

REPORT INFORMATION
  Report Type: Other
  Country: US (occurrence: US)
  Receive Date: 20181113
  Receipt Date: 20181113
  Transmission Date: 20190205
  Serious: No
  Sender: FDA-Public Use
  Company Number: US-LEADING PHARMA, LLC-2058810

PATIENT
  Age: 21 Year
  Sex: Male

DRUGS (1)
  1. LORAZEPAM. [Suspect]
     Active Substance: LORAZEPAM

REACTIONS (5)
  - Withdrawal syndrome [Unknown]
  - Gynaecomastia [Unknown]
  - Polydipsia [Unknown]
  - Akathisia [Unknown]
  - Polyuria [Unknown]
